FAERS Safety Report 9722371 (Version 2)
Quarter: 2014Q1

REPORT INFORMATION
  Report Type: Spontaneous
  Country: US (occurrence: US)
  Receive Date: 20131202
  Receipt Date: 20140203
  Transmission Date: 20141002
  Serious: Yes (Hospitalization)
  Sender: FDA-Public Use
  Company Number: US-JNJFOC-20131114853

PATIENT
  Age: 65 Year
  Sex: Male
  Weight: 95.26 kg

DRUGS (2)
  1. XARELTO [Suspect]
     Indication: CEREBROVASCULAR ACCIDENT PROPHYLAXIS
     Dosage: NDC NUMBER 50458-0579-30
     Route: 048
     Dates: start: 20130128, end: 20130601
  2. XARELTO [Suspect]
     Indication: ATRIAL FIBRILLATION
     Dosage: NDC NUMBER 50458-0579-30
     Route: 048
     Dates: start: 20130128, end: 20130601

REACTIONS (2)
  - Stomatitis [Recovered/Resolved]
  - Ulcer haemorrhage [Recovered/Resolved]
